FAERS Safety Report 24992641 (Version 3)
Quarter: 2025Q4

REPORT INFORMATION
  Report Type: Spontaneous
  Country: JP (occurrence: JP)
  Receive Date: 20250221
  Receipt Date: 20251223
  Transmission Date: 20260117
  Serious: Yes (Life-Threatening, Hospitalization, Other)
  Sender: TAKEDA
  Company Number: JP-TAKEDA-2025TUS018148

PATIENT
  Age: 8 Decade
  Sex: Male

DRUGS (19)
  1. VONOPRAZAN [Suspect]
     Active Substance: VONOPRAZAN
     Indication: Abdominal discomfort
     Dosage: 10 MILLIGRAM, QD
  2. LANSOPRAZOLE [Suspect]
     Active Substance: LANSOPRAZOLE
     Indication: Abdominal discomfort
     Dosage: UNK
  3. LANSOPRAZOLE [Suspect]
     Active Substance: LANSOPRAZOLE
     Dosage: 15 MILLIGRAM, QD
  4. CARBOPLATIN [Suspect]
     Active Substance: CARBOPLATIN
     Indication: Lung adenocarcinoma stage III
     Dosage: AREA UNDER THE CONCENTRATION-TIME CURVE OF 6, ON DAY 1; FIRST-LINE
  5. OMEPRAZOLE [Suspect]
     Active Substance: OMEPRAZOLE
     Indication: Lung adenocarcinoma stage III
     Dosage: 10 MILLIGRAM, QD FOR MORE THAN 3 YEARS
  6. OMEPRAZOLE [Suspect]
     Active Substance: OMEPRAZOLE
     Indication: Gastrooesophageal reflux disease
  7. VERAPAMIL [Suspect]
     Active Substance: VERAPAMIL HYDROCHLORIDE
     Indication: Heart rate increased
     Dosage: 5 MILLIGRAM
  8. FAMOTIDINE [Suspect]
     Active Substance: FAMOTIDINE
     Indication: Dyspepsia
     Dosage: 20 MILLIGRAM, BID
  9. MAGNESIUM OXIDE [Suspect]
     Active Substance: MAGNESIUM OXIDE
     Indication: Hypomagnesaemia
     Dosage: 330 MILLIGRAM, BID
  10. MAGNESIUM OXIDE [Suspect]
     Active Substance: MAGNESIUM OXIDE
     Dosage: 660 MILLIGRAM, TID
  11. MAGNESIUM SULFATE [Suspect]
     Active Substance: MAGNESIUM SULFATE
     Indication: Hypomagnesaemia
     Dosage: 60 MILLIEQUIVALENT
  12. MAGNESIUM SULFATE [Suspect]
     Active Substance: MAGNESIUM SULFATE
     Dosage: 20 MILLIEQUIVALENT
  13. PACLITAXEL [Suspect]
     Active Substance: PACLITAXEL
     Indication: Lung adenocarcinoma stage III
     Dosage: 100 MILLIGRAM/SQ. METER, Q3WEEKS, ON DAYS 1, 8, AND 15; CYCLICAL
  14. OMEGA-3-ACID ETHYL ESTERS [Concomitant]
     Active Substance: OMEGA-3-ACID ETHYL ESTERS
     Indication: Dyslipidaemia
     Dosage: 2 GRAM, QD
  15. PEMAFIBRATE [Concomitant]
     Active Substance: PEMAFIBRATE
     Indication: Dyslipidaemia
     Dosage: 0.1 MILLIGRAM, BID
  16. AMLODIPINE [Concomitant]
     Active Substance: AMLODIPINE BESYLATE
     Indication: Hypertension
     Dosage: 2.5 MILLIGRAM, QD
  17. TELMISARTAN [Concomitant]
     Active Substance: TELMISARTAN
     Dosage: 20 MILLIGRAM, QD
  18. BISOPROLOL [Concomitant]
     Active Substance: BISOPROLOL
     Dosage: 1.25 MILLIGRAM, QD
  19. DISOPYRAMIDE [Concomitant]
     Active Substance: DISOPYRAMIDE
     Dosage: 100 MILLIGRAM, QD

REACTIONS (17)
  - Dyspepsia [Recovered/Resolved]
  - Torsade de pointes [Recovered/Resolved]
  - Hypomagnesaemia [Recovering/Resolving]
  - Oxygen saturation decreased [Unknown]
  - Anaemia [Unknown]
  - Fatigue [Unknown]
  - Arthralgia [Unknown]
  - Hyperventilation [Unknown]
  - Heart rate increased [Unknown]
  - Tremor [Unknown]
  - Renal impairment [Unknown]
  - Dizziness [Unknown]
  - Diarrhoea [Unknown]
  - Neutropenia [Unknown]
  - Aspartate aminotransferase increased [Unknown]
  - Alanine aminotransferase increased [Unknown]
  - Drug ineffective [Unknown]
